FAERS Safety Report 21044853 (Version 2)
Quarter: 2022Q3

REPORT INFORMATION
  Report Type: Spontaneous
  Country: US (occurrence: US)
  Receive Date: 20220705
  Receipt Date: 20220708
  Transmission Date: 20221027
  Serious: No
  Sender: FDA-Public Use
  Company Number: US-LUNDBECK-DKLU3049007

PATIENT
  Age: 13 Year
  Sex: Male

DRUGS (5)
  1. SABRIL [Suspect]
     Active Substance: VIGABATRIN
     Indication: Brain neoplasm
     Route: 048
     Dates: start: 20201015
  2. SABRIL [Suspect]
     Active Substance: VIGABATRIN
     Indication: Tuberous sclerosis complex
     Route: 048
     Dates: start: 20201015
  3. SABRIL [Suspect]
     Active Substance: VIGABATRIN
     Indication: Partial seizures
     Route: 048
     Dates: start: 20210115
  4. SABRIL [Suspect]
     Active Substance: VIGABATRIN
     Indication: Focal dyscognitive seizures
     Route: 048
     Dates: start: 20210115
  5. SABRIL [Suspect]
     Active Substance: VIGABATRIN
     Indication: Epilepsy

REACTIONS (1)
  - Pyrexia [Recovering/Resolving]
